FAERS Safety Report 14980446 (Version 4)
Quarter: 2019Q1

REPORT INFORMATION
  Report Type: Report from Study
  Country: US (occurrence: US)
  Receive Date: 20180606
  Receipt Date: 20190304
  Transmission Date: 20190417
  Serious: Yes (Hospitalization)
  Sender: FDA-Public Use
  Company Number: US-ACTELION-A-US2018-172543

PATIENT
  Sex: Female
  Weight: 124.72 kg

DRUGS (17)
  1. FUROSEMIDE. [Concomitant]
     Active Substance: FUROSEMIDE
  2. WARFARIN [Concomitant]
     Active Substance: WARFARIN
  3. VALSARTAN. [Concomitant]
     Active Substance: VALSARTAN
  4. VITAMIN D3 [Concomitant]
     Active Substance: CHOLECALCIFEROL
  5. XARELTO [Concomitant]
     Active Substance: RIVAROXABAN
  6. REVATIO [Concomitant]
     Active Substance: SILDENAFIL CITRATE
  7. UPTRAVI [Suspect]
     Active Substance: SELEXIPAG
     Indication: PULMONARY ARTERIAL HYPERTENSION
     Dosage: 1600 MCG, BID
     Route: 048
  8. UPTRAVI [Suspect]
     Active Substance: SELEXIPAG
     Dosage: 400 MCG, BID
     Route: 048
  9. UPTRAVI [Suspect]
     Active Substance: SELEXIPAG
     Dosage: 200 MCG, BID
     Route: 048
  10. UPTRAVI [Suspect]
     Active Substance: SELEXIPAG
     Dosage: 600 MCG, BID
     Route: 048
  11. UPTRAVI [Suspect]
     Active Substance: SELEXIPAG
     Dosage: 1600 UNK
     Route: 048
  12. COLCRYS [Concomitant]
     Active Substance: COLCHICINE
  13. OXYGEN. [Concomitant]
     Active Substance: OXYGEN
     Dosage: 6-8L/MIN
  14. AMIODARONE HCL [Concomitant]
     Active Substance: AMIODARONE HYDROCHLORIDE
  15. TRACLEER [Suspect]
     Active Substance: BOSENTAN
     Indication: PULMONARY ARTERIAL HYPERTENSION
     Dosage: 125 MG, UNK
     Route: 048
     Dates: start: 20170929
  16. ALLOPURINOL. [Concomitant]
     Active Substance: ALLOPURINOL
  17. PREDNISONE. [Concomitant]
     Active Substance: PREDNISONE
     Dosage: 5 MG, UNK

REACTIONS (8)
  - Atrial flutter [Recovering/Resolving]
  - Dyspnoea [Unknown]
  - Cardioversion [Recovering/Resolving]
  - Chronic obstructive pulmonary disease [Unknown]
  - Oxygen therapy [Unknown]
  - Oxygen saturation decreased [Not Recovered/Not Resolved]
  - Headache [Unknown]
  - Heart rate increased [Recovering/Resolving]
